FAERS Safety Report 19957140 (Version 1)
Quarter: 2021Q4

REPORT INFORMATION
  Report Type: Spontaneous
  Country: US (occurrence: US)
  Receive Date: 20211014
  Receipt Date: 20211014
  Transmission Date: 20220303
  Serious: Yes (Other)
  Sender: FDA-Public Use
  Company Number: US-GSKCCFUS-CASE-01190749_AE-69701

PATIENT
  Sex: Male

DRUGS (1)
  1. ANORO ELLIPTA [Suspect]
     Active Substance: UMECLIDINIUM BROMIDE\VILANTEROL TRIFENATATE
     Indication: Product used for unknown indication
     Dosage: UNK UNK, 1D, 62.5/25 MCG
     Route: 055

REACTIONS (7)
  - Bladder cancer [Unknown]
  - Macular degeneration [Unknown]
  - Malignant urinary tract neoplasm [Unknown]
  - Dyspnoea [Unknown]
  - Nervousness [Unknown]
  - Wrong technique in device usage process [Unknown]
  - Product dose omission issue [Unknown]
